FAERS Safety Report 23564739 (Version 2)
Quarter: 2025Q1

REPORT INFORMATION
  Report Type: Report from Study
  Country: US (occurrence: US)
  Receive Date: 20240226
  Receipt Date: 20250325
  Transmission Date: 20250409
  Serious: Yes (Hospitalization, Other)
  Sender: AMNEAL
  Company Number: US-AMNEAL PHARMACEUTICALS-2024-AMRX-00563

PATIENT
  Sex: Male
  Weight: 79.819 kg

DRUGS (20)
  1. CARBIDOPA\LEVODOPA [Suspect]
     Active Substance: CARBIDOPA\LEVODOPA
     Indication: Parkinson^s disease
     Dosage: 3 CAPSULES, QID (36.25-145MG) TAKE 3 CAPSULES BY MOUTH FOUR TIMES A DAY AT 7:30, 11:30, 3:30, 7:30PM
     Route: 048
     Dates: start: 20240108, end: 20250224
  2. ELIQUIS [Concomitant]
     Active Substance: APIXABAN
     Indication: Product used for unknown indication
     Dosage: 1 TABLETS (5 MG), BID
     Route: 048
     Dates: start: 20240903, end: 20250214
  3. ASCORBIC ACID [Concomitant]
     Active Substance: ASCORBIC ACID
     Indication: Product used for unknown indication
     Dosage: 1000 MILLIGRAM, DAILY
     Route: 048
  4. BUSPAR [Concomitant]
     Active Substance: BUSPIRONE HYDROCHLORIDE
     Indication: Product used for unknown indication
     Route: 048
     Dates: start: 20241014, end: 20241231
  5. VITAMIN D3 [Concomitant]
     Active Substance: CHOLECALCIFEROL
     Indication: Product used for unknown indication
     Dosage: 1 TABLETS (124 MCG), DAILY
     Route: 048
  6. KLONOPIN [Concomitant]
     Active Substance: CLONAZEPAM
     Indication: Rapid eye movement sleep behaviour disorder
     Dosage: 0.5 TABLETS (0.5 MG), BEDTIME
     Route: 048
     Dates: start: 20241101, end: 20250224
  7. VITAMIN B12 [Concomitant]
     Active Substance: CYANOCOBALAMIN
     Indication: Product used for unknown indication
     Dosage: 1500 MICROGRAM, DAILY
     Route: 048
     Dates: end: 20250224
  8. ARICEPT [Concomitant]
     Active Substance: DONEPEZIL HYDROCHLORIDE
     Indication: Product used for unknown indication
     Dosage: 1.5 TABLETS (10 MG), DAILY
     Route: 048
  9. PERIOSTAT [DOXYCYCLINE HYCLATE] [Concomitant]
     Indication: Product used for unknown indication
     Dosage: 1 TABLETS (20 MG), BID
     Route: 048
  10. PEPCID [Concomitant]
     Active Substance: FAMOTIDINE
     Indication: Product used for unknown indication
     Route: 048
     Dates: start: 20240501
  11. FLORINEF ACETATE [Concomitant]
     Active Substance: FLUDROCORTISONE ACETATE
     Indication: Product used for unknown indication
     Dosage: 1 TABLETS (0.1 MG), DAILY
     Route: 048
     Dates: start: 20240212, end: 20241223
  12. APRESOLINE HYDROCHLORIDE [Concomitant]
     Active Substance: HYDRALAZINE HYDROCHLORIDE
     Indication: Blood pressure systolic increased
     Dosage: 1 TABLETS (10 MG), TID AS NEEDED
     Route: 048
     Dates: start: 20231221
  13. CLARITIN [Concomitant]
     Active Substance: LORATADINE
     Indication: Product used for unknown indication
     Dosage: 1 TABLETS (10 MG), DAILY
     Route: 048
  14. ATIVAN [Concomitant]
     Active Substance: LORAZEPAM
     Indication: Anxiety
     Dosage: 1 TABLETS (0.5 MG), EVERY 4HR
     Route: 065
     Dates: start: 20240904
  15. ATIVAN [Concomitant]
     Active Substance: LORAZEPAM
     Indication: Restlessness
  16. MELATONIN [Concomitant]
     Active Substance: MELATONIN
     Indication: Product used for unknown indication
     Dosage: 10 MILLIGRAM, DAILY
     Route: 048
  17. PROAMATINE [Concomitant]
     Active Substance: MIDODRINE HYDROCHLORIDE
     Indication: Hypotension
     Dosage: 1 TABLETS (5 MG), TID
     Route: 048
     Dates: start: 20240429
  18. MINERALS\VITAMINS [Concomitant]
     Active Substance: MINERALS\VITAMINS
     Indication: Product used for unknown indication
     Dosage: 1 TABLETS, DAILY
     Route: 048
  19. DELTASONE [Concomitant]
     Active Substance: PREDNISONE
     Indication: Illness
     Dosage: 1.5 TABLETS (5 MG), DAILY
     Route: 048
     Dates: start: 20240418, end: 20250224
  20. SEROQUEL [Concomitant]
     Active Substance: QUETIAPINE FUMARATE
     Indication: Product used for unknown indication
     Route: 065
     Dates: start: 20241010

REACTIONS (17)
  - Infection [Recovering/Resolving]
  - Pyrexia [Recovering/Resolving]
  - Confusional state [Recovering/Resolving]
  - Hallucination [Unknown]
  - Rapid eye movement sleep behaviour disorder [Unknown]
  - Blood pressure decreased [Unknown]
  - Cognitive disorder [Unknown]
  - Therapeutic response shortened [Unknown]
  - Depression [Unknown]
  - Tremor [Unknown]
  - Movement disorder [Unknown]
  - Speech disorder [Unknown]
  - Nervousness [Unknown]
  - Psychotic disorder [Unknown]
  - Constipation [Unknown]
  - Anxiety [Unknown]
  - Agitation [Unknown]
